FAERS Safety Report 10068901 (Version 2)
Quarter: 2014Q2

REPORT INFORMATION
  Report Type: Report from Study
  Country: JP (occurrence: JP)
  Receive Date: 20140409
  Receipt Date: 20140428
  Transmission Date: 20141212
  Serious: Yes (Hospitalization, Disabling)
  Sender: FDA-Public Use
  Company Number: JP-JNJFOC-20140405204

PATIENT
  Age: 65 Year
  Sex: Female
  Weight: 51 kg

DRUGS (13)
  1. SIRUKUMAB [Suspect]
     Indication: RHEUMATOID ARTHRITIS
     Route: 058
     Dates: start: 20130412, end: 20140325
  2. TRAMCET [Concomitant]
     Indication: INFECTIVE SPONDYLITIS
     Route: 048
     Dates: start: 20140403, end: 20140404
  3. TRAMCET [Concomitant]
     Indication: BACK PAIN
     Route: 048
     Dates: start: 20140403, end: 20140404
  4. RHEUMATREX [Concomitant]
     Indication: RHEUMATOID ARTHRITIS
     Route: 048
     Dates: start: 20120404
  5. PREDONINE [Concomitant]
     Indication: RHEUMATOID ARTHRITIS
     Route: 048
     Dates: start: 20030829
  6. LOXOPROFEN [Concomitant]
     Indication: RHEUMATOID ARTHRITIS
     Route: 048
     Dates: start: 20060602
  7. YAKUBAN [Concomitant]
     Indication: RHEUMATOID ARTHRITIS
     Route: 062
     Dates: start: 20130312
  8. BONALON [Concomitant]
     Indication: OSTEOPOROSIS
     Route: 048
     Dates: start: 20090701
  9. CARNACULIN [Concomitant]
     Indication: RETINAL VEIN OCCLUSION
     Route: 048
     Dates: start: 20110523
  10. KARY UNI [Concomitant]
     Indication: CATARACT
     Route: 047
     Dates: start: 20071022
  11. HYALURONIC ACID [Concomitant]
     Indication: DRY EYE
     Route: 047
     Dates: start: 20111128
  12. MUCOSTA [Concomitant]
     Indication: PROPHYLAXIS AGAINST GASTROINTESTINAL ULCER
     Route: 048
     Dates: start: 20131119
  13. PRIMPERAN [Concomitant]
     Route: 048
     Dates: start: 20140403, end: 20140404

REACTIONS (3)
  - Sepsis [Recovered/Resolved]
  - Endophthalmitis [Recovered/Resolved]
  - Infective spondylitis [Not Recovered/Not Resolved]
